FAERS Safety Report 7134746-1 (Version None)
Quarter: 2010Q4

REPORT INFORMATION
  Report Type: 
  Country: None (occurrence: None)
  Receive Date: 20101203
  Receipt Date: 20101123
  Transmission Date: 20110411
  Serious: Yes (Hospitalization)
  Sender: FDA-Public Use
  Company Number: LB-GENENTECH-302668

PATIENT
  Age: 23 Year
  Sex: Male

DRUGS (1)
  1. MABTHERA [Suspect]
     Indication: VASCULITIS
     Dosage: 500 MG, UNK
     Route: 042

REACTIONS (2)
  - PULMONARY OEDEMA [None]
  - RESPIRATORY FAILURE [None]
